FAERS Safety Report 20759128 (Version 1)
Quarter: 2022Q2

REPORT INFORMATION
  Report Type: Spontaneous
  Country: US (occurrence: US)
  Receive Date: 20220427
  Receipt Date: 20220427
  Transmission Date: 20220721
  Serious: No
  Sender: FDA-Public Use
  Company Number: US-BioHaven Pharmaceuticals-2021BHV003202

PATIENT
  Age: 49 Year

DRUGS (1)
  1. NURTEC ODT [Suspect]
     Active Substance: RIMEGEPANT SULFATE
     Indication: Migraine
     Dosage: TRIED THREE DOSES OF NURTEC
     Route: 065
     Dates: start: 202111, end: 2021

REACTIONS (2)
  - Drug ineffective [Unknown]
  - Migraine [Recovered/Resolved]
